FAERS Safety Report 7290259-8 (Version None)
Quarter: 2011Q1

REPORT INFORMATION
  Report Type: 
  Country: None (occurrence: None)
  Receive Date: 20110214
  Receipt Date: 20110131
  Transmission Date: 20110831
  Serious: Yes (Death)
  Sender: FDA-Public Use
  Company Number: US-CELGENEUS-163-21880-11010872

PATIENT
  Sex: Female

DRUGS (5)
  1. ZOLPIDEM [Concomitant]
     Route: 065
  2. REVLIMID [Suspect]
     Indication: MYELODYSPLASTIC SYNDROME
     Route: 048
     Dates: start: 20101001
  3. XANAX [Concomitant]
     Route: 065
  4. ADVAIR DISKUS 100/50 [Concomitant]
     Dosage: 250/50
     Route: 065
  5. CITALOPRAM HYDROBROMIDE [Concomitant]
     Route: 065

REACTIONS (2)
  - NEOPLASM PROGRESSION [None]
  - MYELODYSPLASTIC SYNDROME [None]
